FAERS Safety Report 5235505-7 (Version None)
Quarter: 2007Q1

REPORT INFORMATION
  Report Type: 
  Country: None (occurrence: None)
  Receive Date: 20061208
  Receipt Date: 20060627
  Transmission Date: 20070707
  Serious: Yes (Other)
  Sender: FDA-Public Use
  Company Number: 2006UW13554

PATIENT
  Sex: Female
  Weight: 70.306 kg

DRUGS (7)
  1. CRESTOR [Suspect]
     Indication: BLOOD CHOLESTEROL INCREASED
     Dosage: 5 MG PO
     Route: 048
     Dates: start: 20050101
  2. CELEBREX [Concomitant]
  3. VITAMIN CAP [Concomitant]
  4. GLUCOSAMINE [Concomitant]
  5. CALCIUM [Concomitant]
  6. EFA PLUS [Concomitant]
  7. PEPTIC PRE-MAIL [Concomitant]

REACTIONS (1)
  - OESOPHAGEAL DISORDER [None]
